FAERS Safety Report 8186755-1 (Version None)
Quarter: 2012Q1

REPORT INFORMATION
  Report Type: 
  Country: None (occurrence: None)
  Receive Date: 20120306
  Receipt Date: 20120306
  Transmission Date: 20120608
  Serious: Yes (Hospitalization, Other)
  Sender: FDA-Public Use
  Company Number: None

PATIENT
  Sex: Female
  Weight: 60.781 kg

DRUGS (1)
  1. FENTANYL [Suspect]
     Indication: HIP ARTHROPLASTY
     Dosage: 85 -MEANING UNKNOWN-
     Route: 041
     Dates: start: 20110323, end: 20110323

REACTIONS (21)
  - ANXIETY [None]
  - CATATONIA [None]
  - FATIGUE [None]
  - WEIGHT DECREASED [None]
  - URINARY RETENTION [None]
  - SURGICAL PROCEDURE REPEATED [None]
  - CONFUSIONAL STATE [None]
  - DIZZINESS [None]
  - HALLUCINATION [None]
  - APHASIA [None]
  - DEPRESSION [None]
  - APNOEA [None]
  - NERVOUSNESS [None]
  - URINARY TRACT INFECTION [None]
  - PANIC ATTACK [None]
  - ASTHENIA [None]
  - DYSPNOEA [None]
  - PSYCHOTIC DISORDER [None]
  - PERSONALITY CHANGE [None]
  - DEMENTIA [None]
  - DRUG EFFECT DECREASED [None]
